FAERS Safety Report 9694864 (Version 1)
Quarter: 2013Q4

REPORT INFORMATION
  Report Type: Spontaneous
  Country: FR (occurrence: FR)
  Receive Date: 20131119
  Receipt Date: 20131119
  Transmission Date: 20140711
  Serious: Yes (Hospitalization)
  Sender: FDA-Public Use
  Company Number: FR-MERCK-1311FRA004935

PATIENT
  Age: 56 Year
  Sex: Female

DRUGS (3)
  1. EZETROL [Suspect]
     Dosage: UNK
     Route: 048
     Dates: start: 20061219
  2. VITAMIN E [Concomitant]
     Dosage: UNK
     Route: 048
  3. CALCIUM (UNSPECIFIED) [Concomitant]
     Dosage: UNK
     Route: 048

REACTIONS (1)
  - Neurodegenerative disorder [Not Recovered/Not Resolved]
